FAERS Safety Report 14874521 (Version 2)
Quarter: 2019Q1

REPORT INFORMATION
  Report Type: Spontaneous
  Country: NL (occurrence: NL)
  Receive Date: 20180510
  Receipt Date: 20190304
  Transmission Date: 20190417
  Serious: Yes (Death, Other)
  Sender: FDA-Public Use
  Company Number: NL-PFIZER INC-2018186911

PATIENT
  Age: 55 Year
  Sex: Female

DRUGS (3)
  1. MICAFUNGIN. [Concomitant]
     Active Substance: MICAFUNGIN SODIUM
     Dosage: 100 MG, 1X/DAY
  2. AMBISOME [Suspect]
     Active Substance: AMPHOTERICIN B
     Indication: ASPERGILLUS INFECTION
     Dosage: 3 MG/KG, 1X/DAY EVERY 24 HOURS
     Route: 042
  3. VORICONAZOLE. [Suspect]
     Active Substance: VORICONAZOLE
     Indication: ASPERGILLUS INFECTION
     Dosage: 200 MG, 2X/DAY
     Route: 042

REACTIONS (1)
  - Drug ineffective [Fatal]
